FAERS Safety Report 10886562 (Version 1)
Quarter: 2015Q1

REPORT INFORMATION
  Report Type: Spontaneous
  Country: US (occurrence: US)
  Receive Date: 20150304
  Receipt Date: 20150304
  Transmission Date: 20150721
  Serious: Yes (Hospitalization, Other)
  Sender: FDA-Public Use
  Company Number: US-GLAXOSMITHKLINE-US2015GSK027316

PATIENT
  Sex: Male
  Weight: 74.83 kg

DRUGS (4)
  1. LAMICTAL [Suspect]
     Active Substance: LAMOTRIGINE
     Indication: SEIZURE
     Dosage: UNK, U
  2. DILANTIN [Suspect]
     Active Substance: PHENYTOIN
     Indication: SEIZURE
     Dosage: UNK, U
  3. KEPPRA [Suspect]
     Active Substance: LEVETIRACETAM
     Indication: SEIZURE
     Dosage: UNK, U
  4. DEPAKOTE ER [Suspect]
     Active Substance: DIVALPROEX SODIUM
     Indication: TEMPORAL LOBE EPILEPSY
     Dosage: UNK
     Dates: start: 1999, end: 2009

REACTIONS (12)
  - Seizure [Unknown]
  - Hypertension [Unknown]
  - Haematuria [Unknown]
  - Prostatomegaly [Recovered/Resolved]
  - Urinary tract disorder [Unknown]
  - Aphonia [Recovered/Resolved]
  - Benign prostatic hyperplasia [Unknown]
  - Glare [Unknown]
  - Oropharyngeal pain [Unknown]
  - Tremor [Unknown]
  - Drug ineffective [Unknown]
  - Dizziness [Unknown]
